FAERS Safety Report 12833457 (Version 1)
Quarter: 2016Q4

REPORT INFORMATION
  Report Type: Spontaneous
  Country: US (occurrence: US)
  Receive Date: 20161010
  Receipt Date: 20161010
  Transmission Date: 20170207
  Serious: No
  Sender: FDA-Public Use
  Company Number: US-TORRENT-00001266

PATIENT
  Sex: Male

DRUGS (1)
  1. TRAZODONE HYDROCHLORIDE TABLETS USP [Suspect]
     Active Substance: TRAZODONE HYDROCHLORIDE
     Indication: DEPRESSION
     Dosage: 500 MG

REACTIONS (2)
  - Drug ineffective [Unknown]
  - Drug resistance [Unknown]
